FAERS Safety Report 5488818-8 (Version None)
Quarter: 2007Q4

REPORT INFORMATION
  Report Type: 
  Country: None (occurrence: None)
  Receive Date: 20071017
  Receipt Date: 20071005
  Transmission Date: 20080405
  Serious: Yes (Hospitalization)
  Sender: FDA-Public Use
  Company Number: FR-PFIZER INC-2007071677

PATIENT
  Sex: Female
  Weight: 71 kg

DRUGS (12)
  1. ZYVOX [Suspect]
     Route: 042
     Dates: start: 20070724, end: 20070731
  2. TRIFLUCAN [Suspect]
     Route: 042
     Dates: start: 20070726, end: 20070729
  3. KEPPRA [Suspect]
     Indication: GRAND MAL CONVULSION
     Route: 042
     Dates: start: 20070723, end: 20070804
  4. CIFLOX [Suspect]
     Indication: LUNG DISORDER
     Route: 042
     Dates: start: 20070724, end: 20070731
  5. TAZOCILLINE [Suspect]
     Route: 042
     Dates: start: 20070725, end: 20070801
  6. AUGMENTIN '125' [Concomitant]
     Dates: start: 20070707, end: 20070712
  7. ORBENINE [Concomitant]
     Dates: start: 20070718, end: 20070719
  8. GENTAMICIN SULFATE [Concomitant]
     Dates: start: 20070719, end: 20070722
  9. RIVOTRIL [Concomitant]
  10. TIENAM [Concomitant]
     Dates: start: 20070724, end: 20070724
  11. HYPNOVEL [Concomitant]
     Indication: SEDATION
  12. FENTANYL [Concomitant]
     Indication: SEDATION

REACTIONS (2)
  - HYPERSENSITIVITY [None]
  - LEUKOPENIA [None]
